FAERS Safety Report 6416463-6 (Version None)
Quarter: 2009Q4

REPORT INFORMATION
  Report Type: 
  Country: None (occurrence: None)
  Receive Date: 20091027
  Receipt Date: 20091023
  Transmission Date: 20100525
  Serious: Yes (Death)
  Sender: FDA-Public Use
  Company Number: CN-ASTRAZENECA-2009SE08884

PATIENT
  Age: 46 Year
  Sex: Male
  Weight: 81 kg

DRUGS (4)
  1. SYMBICORT [Suspect]
     Indication: ASTHMA
     Dosage: 160/4.5 UG; INHALED 2 DOSES
     Route: 055
     Dates: start: 20090818
  2. SYMBICORT [Suspect]
     Dosage: 160/4.5 UG; INHALED 1 DOSE
     Route: 055
     Dates: start: 20090818
  3. SYMBICORT [Suspect]
     Dosage: 160/4.5 UG; INHALED 1 DOSE
     Route: 055
     Dates: start: 20090819
  4. OMEPRAZOLE [Concomitant]
     Route: 065

REACTIONS (2)
  - MYOCARDIAL INFARCTION [None]
  - MYOCARDITIS [None]
